FAERS Safety Report 14599815 (Version 1)
Quarter: 2018Q1

REPORT INFORMATION
  Report Type: Spontaneous
  Country: US (occurrence: US)
  Receive Date: 20180304
  Receipt Date: 20180304
  Transmission Date: 20180509
  Serious: Yes (Other)
  Sender: FDA-Public Use
  Company Number: None

PATIENT
  Age: 37 Year
  Sex: Female
  Weight: 57.15 kg

DRUGS (2)
  1. NITROFURANTOIN MONOHYDRATE MACROCRYSTALS [Suspect]
     Active Substance: NITROFURANTOIN\NITROFURANTOIN MONOHYDRATE
     Indication: URINARY TRACT INFECTION
     Dosage: ?          QUANTITY:14 CAPSULE(S);?
     Route: 048
     Dates: start: 20180228, end: 20180303
  2. AMPICILLIN [Concomitant]
     Active Substance: AMPICILLIN

REACTIONS (12)
  - Mobility decreased [None]
  - Exposure during pregnancy [None]
  - Gait inability [None]
  - Hepatic pain [None]
  - Pyrexia [None]
  - Chills [None]
  - Abdominal pain upper [None]
  - Headache [None]
  - Pain [None]
  - Fatigue [None]
  - General physical health deterioration [None]
  - Bedridden [None]

NARRATIVE: CASE EVENT DATE: 20180302
